FAERS Safety Report 22167069 (Version 1)
Quarter: 2023Q2

REPORT INFORMATION
  Report Type: Spontaneous
  Country: US (occurrence: US)
  Receive Date: 20230403
  Receipt Date: 20230403
  Transmission Date: 20230721
  Serious: Yes (Other)
  Sender: FDA-Public Use
  Company Number: US-ALVOGEN-2023089480

PATIENT
  Age: 21 Year
  Sex: Male

DRUGS (42)
  1. HYOSCYAMINE [Suspect]
     Active Substance: HYOSCYAMINE
     Indication: Bladder spasm
     Dosage: TAKE ONE TABLET EVERY 4 TO 6 HOURS
     Dates: start: 20230317, end: 20230320
  2. BANZEL [Concomitant]
     Active Substance: RUFINAMIDE
     Indication: Seizure
     Dosage: 30ML, AT 8 AM AND 8 PM.
  3. CLORAZEPATE DIPOTASSIUM [Concomitant]
     Active Substance: CLORAZEPATE DIPOTASSIUM
     Indication: Seizure
     Dosage: 11.25 (THREE 3.75 MG TABLETS) 2 TIMES PER DAY, 8 AM, 8 PM
  4. EPIDIOLEX [Concomitant]
     Active Substance: CANNABIDIOL
     Indication: Seizure
     Dosage: CURRENTLY 6.2 ML AT 10:30 AM, 6.5 ML AT 8 PM.
  5. FYCOMPA [Concomitant]
     Active Substance: PERAMPANEL
     Indication: Seizure
     Dosage: AT 8 PM.
  6. LAMOTRIGINE [Concomitant]
     Active Substance: LAMOTRIGINE
     Indication: Seizure
     Dosage: (THREE 100 MG TABLETS), AT 8 AM, 8 PM
  7. CLOBAZAM [Concomitant]
     Active Substance: CLOBAZAM
     Indication: Seizure
     Dosage: 10 MG (4 ML) AT 8:00 AM AND 15 MG (6 ML) AT 10 PM.?ON?
  8. XCOPRI [Concomitant]
     Active Substance: CENOBAMATE
     Indication: Seizure
     Dosage: AT 8 PM.
  9. MIRALAX [Concomitant]
     Active Substance: POLYETHYLENE GLYCOL 3350
     Indication: Constipation
     Dosage: 17 GRAMS UP TO 2 TIMES PER DAY PRN.
  10. Selma [Concomitant]
     Indication: Constipation
     Dosage: (7.5 ML) 1 TIME A DAY AT 8 PM. MAY GIVE ONE ADDITIONAL PRN DOSE.
  11. Alpha lipoic acid powder [Concomitant]
     Indication: Product used for unknown indication
     Dosage: AT 8 AM AND 8 PM
  12. VITAMIN D3 [Concomitant]
     Active Substance: CHOLECALCIFEROL
     Indication: Product used for unknown indication
     Dosage: (2 DROPS) AT 8 AM
  13. D-ribose powder [Concomitant]
     Indication: Product used for unknown indication
     Dosage: AT 8 AM, 8 PM
  14. LEVOCARNITINE [Concomitant]
     Active Substance: LEVOCARNITINE
     Indication: Product used for unknown indication
     Dosage: 8 AM. HOLD WHEN GETTING AN IV WITH LEVOCARNITINE.
  15. LEUCOVORIN [Concomitant]
     Active Substance: LEUCOVORIN
     Indication: Product used for unknown indication
     Dosage: 25 MG (1 TABLET) THREE TIMES PER DAY, 8 AM, 2 PM, 8 PM
  16. N-Acetylcystene Powder [Concomitant]
     Indication: Product used for unknown indication
     Dosage: 1200 MG TWO TIMES PER DAY, 8 AM, 8 PM
  17. FUROSEMIDE [Concomitant]
     Active Substance: FUROSEMIDE
     Indication: Oedema
     Dosage: 8AM. MAY HAVE A PRN DOSE AT 2 PM
  18. ZYRTEC [Concomitant]
     Active Substance: CETIRIZINE HYDROCHLORIDE
     Indication: Hypersensitivity
     Dosage: 8 AM. CAN HAVE A PRN DOSE AT 8 PM IF NEEDED. IF?NO LIQUID AVAILABLE, CAN CRUSH PILLS.
  19. FLONASE [Concomitant]
     Active Substance: FLUTICASONE PROPIONATE
     Indication: Hypersensitivity
     Dosage: 1 SPRAY IN EACH NOSTRIL 2 TIMES A DAY, 8 AM, 8 PM?NO LIQUID AVAILABLE, CAN CRUSH PILLS.
  20. FILGRASTIM [Concomitant]
     Active Substance: FILGRASTIM
     Indication: Neutropenia
     Dosage: 60 MCG (0.2 ML) AS NEEDED FOR ANC 1,000 OR BELOW
  21. AMINOCAPROIC ACID [Concomitant]
     Active Substance: AMINOCAPROIC ACID
     Indication: Epistaxis
     Dosage: TWO 500 MG TABLETS.
  22. Phospha 250 Neutral (Phosphorous) [Concomitant]
     Indication: Nutritional supplementation
     Dosage: ONE TABLET THREE TIMES A DAY, 8 AM, 8 PM, 2AM IN FEEDS
  23. PEDIALYTE [Concomitant]
     Active Substance: POTASSIUM CITRATE\SODIUM CITRATE\ZINC
     Indication: Enteral nutrition
     Dosage: MAY INCREASE WHEN SICK AND NOT TOLERATING PEPTAMEN JR.
  24. MELATONIN [Concomitant]
     Active Substance: MELATONIN
     Indication: Product used for unknown indication
     Dosage: 8 PM
  25. CLOTRIMAZOLE [Concomitant]
     Active Substance: CLOTRIMAZOLE
     Indication: Antifungal treatment
     Dosage: APPLY THREE TIMES A DAY AS NEEDED.?1% CREAM
  26. HYDROCORTISONE [Concomitant]
     Active Substance: HYDROCORTISONE
     Indication: Pruritus
     Dosage: APPLY TWICE A DAY AS NEEDED.
  27. IBUPROFEN [Concomitant]
     Active Substance: IBUPROFEN
     Indication: Pain
     Dosage: (30 ML) PRN FOR PAIN OR FEVERS. MAY GIVE EVERY 6 HOURS.
  28. MAALOX ANTACID [Concomitant]
     Active Substance: ALUMINUM HYDROXIDE\DIMETHICONE\MAGNESIUM HYDROXIDE
     Indication: Erythema
     Dosage: APPLY 1 TO 2 TIMES PER DAY AS NEEDED.
  29. MUPIROCIN [Concomitant]
     Active Substance: MUPIROCIN
     Indication: Skin irritation
     Dosage: APPLY 3 TIMES PER DAY AS NEEDED.
  30. NYSTATIN [Concomitant]
     Active Substance: NYSTATIN
     Indication: Fungal infection
     Dosage: APPLY TWICE DAILY TO YEAST/INFECTED SKIN IN?PERINEAL/GROIN/ABDOMINAL FOLDS AS NEEDED.
  31. ONDANSETRON [Concomitant]
     Active Substance: ONDANSETRON
     Indication: Nausea
     Dosage: (5 ML) PRN EVERY 8 HOURS
  32. OXYGEN [Concomitant]
     Active Substance: OXYGEN
     Indication: Product used for unknown indication
     Dosage: 1-2 LPM VIA BLOWBY MASK, NASAL CANNULA, OR THROUGH VENTILATOR AS NEEDED TO KEEP SATURATIONS } 90%.
  33. PROBIOTICS NOS [Concomitant]
     Active Substance: PROBIOTICS NOS
     Indication: Product used for unknown indication
     Dosage: WHEN ON ANTIBIOTICS OR ILL
  34. SCOPOLAMINE [Concomitant]
     Active Substance: SCOPOLAMINE
     Indication: Nausea
     Dosage: MAY WEAR PATCH FOR 3 DAYS THEN?MUST CHANGE PATCH OUT AND PUT NEW PATCH ON OPPOSITE EAR.
  35. Triamicinolone [Concomitant]
     Indication: Eczema
     Dosage: CREAM 1% (KENALOG). USE TWICE DAILY FOR 2-3 WEEKS.
  36. Sterile Sodium Chloride [Concomitant]
     Indication: Product used for unknown indication
     Dosage: 0.9 PERCENT 10 ML ?USH: MAY USE EXTRA ?USHES AS NECESSARY TO KEEP LINE PATENT.
  37. HEPARIN [Concomitant]
     Active Substance: HEPARIN SODIUM
     Indication: Product used for unknown indication
     Dosage: HEPARIN 200U/VANCOMYCIN 5MG/2ML LOCK: LOCK BROVIAC AFTER IV AND ?USH COMPLETION.
  38. VANCOMYCIN [Concomitant]
     Active Substance: VANCOMYCIN
     Indication: Product used for unknown indication
     Dosage: VANCOMYCIN 5MG/2ML LOCK: LOCK BROVIAC AFTER IV AND ?USH COMPLETION.
  39. ALTEPLASE [Concomitant]
     Active Substance: ALTEPLASE
     Indication: Product used for unknown indication
     Dosage: 2MG AND STERILE WATER
  40. Peptamen Jr [Concomitant]
     Indication: Product used for unknown indication
     Dosage: DEPENDING ON OTHER CALORIE INTAKE MAY GIVE UP TO 5 BOXES IN ONE DAY
  41. OXYBUTYNIN [Concomitant]
     Active Substance: OXYBUTYNIN
     Indication: Bladder spasm
     Dosage: 10 ML PRN DOSE IFNEEDED FOR LADDER SPASMS
     Dates: end: 20230316
  42. GEMTESA [Concomitant]
     Active Substance: VIBEGRON
     Indication: Bladder spasm
     Dosage: 75MG (1 TABLET) ONCE A DAY, 8 AM
     Dates: end: 20230316

REACTIONS (2)
  - Change in seizure presentation [Not Recovered/Not Resolved]
  - Restlessness [Not Recovered/Not Resolved]

NARRATIVE: CASE EVENT DATE: 20230319
